FAERS Safety Report 10196620 (Version 1)
Quarter: 2014Q2

REPORT INFORMATION
  Report Type: Spontaneous
  Country: US (occurrence: None)
  Receive Date: 20140522
  Receipt Date: 20140522
  Transmission Date: 20141212
  Serious: Yes (Disabling, Other)
  Sender: FDA-Public Use
  Company Number: 2342146

PATIENT
  Age: 64 Year
  Sex: Female

DRUGS (3)
  1. GEMCITABINE HYDROCHLORIDE [Suspect]
     Indication: CHOLANGIOCARCINOMA
     Dosage: CYCLICAL
     Route: 042
  2. CISPLATIN [Suspect]
     Indication: CHOLANGIOCARCINOMA
     Dosage: CYCLICAL
     Route: 042
  3. OXALIPLATIN [Concomitant]

REACTIONS (7)
  - Blindness [None]
  - Retinal exudates [None]
  - Retinal haemorrhage [None]
  - Renal failure chronic [None]
  - Haemodialysis [None]
  - Retinal vasculitis [None]
  - Retinal ischaemia [None]
